FAERS Safety Report 7210855-3 (Version None)
Quarter: 2011Q1

REPORT INFORMATION
  Report Type: 
  Country: None (occurrence: None)
  Receive Date: 20110105
  Receipt Date: 20101230
  Transmission Date: 20110831
  Serious: Yes (Hospitalization)
  Sender: FDA-Public Use
  Company Number: FR-PFIZER INC-2011001393

PATIENT
  Age: 79 Year
  Sex: Female

DRUGS (8)
  1. TOPALGIC [Concomitant]
     Dosage: 50, 4X/DAY
  2. TARDYFERON [Concomitant]
     Dosage: 80 MG, UNK
  3. INIPOMP [Suspect]
     Dosage: 20 MG, 1X/DAY
     Route: 048
  4. DABIGATRAN ETEXILATE [Suspect]
     Indication: THROMBOSIS PROPHYLAXIS
     Dosage: 75 MG, 2X/DAY
     Route: 048
     Dates: start: 20091219
  5. ATHYMIL [Concomitant]
     Dosage: 30 MG, 4X/DAY
  6. SPECIAFOLDINE [Concomitant]
  7. DIFFU K [Concomitant]
     Dosage: UNK
  8. ALDACTAZINE [Concomitant]
     Dosage: UNK

REACTIONS (2)
  - PULMONARY EMBOLISM [None]
  - DRUG INEFFECTIVE [None]
